FAERS Safety Report 13332630 (Version 2)
Quarter: 2017Q2

REPORT INFORMATION
  Report Type: Report from Study
  Country: US (occurrence: US)
  Receive Date: 20170314
  Receipt Date: 20170510
  Transmission Date: 20170830
  Serious: Yes (Hospitalization, Other)
  Sender: FDA-Public Use
  Company Number: US-BAYER-2017-043894

PATIENT
  Age: 71 Year
  Sex: Male

DRUGS (2)
  1. XOFIGO [Suspect]
     Active Substance: RADIUM RA-223 DICHLORIDE
     Indication: METASTASES TO BONE
     Dosage: ONCE EVERY 28 DAYS
     Route: 042
     Dates: start: 20170126, end: 20170126
  2. XOFIGO [Suspect]
     Active Substance: RADIUM RA-223 DICHLORIDE
     Indication: PROSTATE CANCER STAGE IV
     Dosage: ONCE EVERY 28 DAYS
     Route: 042
     Dates: start: 20161222, end: 20161222

REACTIONS (2)
  - Hospitalisation [None]
  - Heart valve operation [None]
